FAERS Safety Report 8012633-4 (Version None)
Quarter: 2011Q4

REPORT INFORMATION
  Report Type: 
  Country: None (occurrence: None)
  Receive Date: 20111229
  Receipt Date: 20111221
  Transmission Date: 20120403
  Serious: Yes (Other)
  Sender: FDA-Public Use
  Company Number: DK-JNJFOC-20110507061

PATIENT
  Sex: Male

DRUGS (6)
  1. METHOTREXATE [Suspect]
     Indication: ANKYLOSING SPONDYLITIS
     Route: 065
     Dates: start: 20050623, end: 20060301
  2. REMICADE [Suspect]
     Indication: ANKYLOSING SPONDYLITIS
     Route: 042
     Dates: start: 20101014
  3. METHOTREXATE [Suspect]
     Route: 065
     Dates: start: 20071024, end: 20101014
  4. METHOTREXATE [Suspect]
     Route: 065
     Dates: start: 20061011, end: 20070411
  5. REMICADE [Suspect]
     Route: 042
     Dates: start: 20040929
  6. METHOTREXATE [Suspect]
     Route: 065
     Dates: start: 20040929, end: 20050302

REACTIONS (1)
  - BASAL CELL CARCINOMA [None]
